FAERS Safety Report 17998569 (Version 1)
Quarter: 2020Q3

REPORT INFORMATION
  Report Type: Report from Study
  Country: US (occurrence: US)
  Receive Date: 20200709
  Receipt Date: 20200709
  Transmission Date: 20201103
  Serious: Yes (Hospitalization, Other)
  Sender: FDA-Public Use
  Company Number: US-ROCHE-2194561

PATIENT
  Age: 41 Year
  Sex: Female
  Weight: 107.5 kg

DRUGS (1)
  1. ATEZOLIZUMAB. [Suspect]
     Active Substance: ATEZOLIZUMAB
     Indication: OVARIAN CANCER
     Dosage: OVER 1 HOUR ON DAYS 1 AND 15, MOST RECENT DOSE ADMINISTERED ON 02/AUG/2018.
     Route: 042
     Dates: start: 20180719

REACTIONS (7)
  - Pneumonia [Recovering/Resolving]
  - Dyspnoea [Unknown]
  - Peritonitis bacterial [Recovering/Resolving]
  - Ascites [Unknown]
  - Dehydration [Recovered/Resolved]
  - Hypokalaemia [Recovering/Resolving]
  - Small intestinal obstruction [Recovered/Resolved]

NARRATIVE: CASE EVENT DATE: 20180807
